FAERS Safety Report 8554792-0 (Version None)
Quarter: 2012Q3

REPORT INFORMATION
  Report Type: 
  Country: None (occurrence: None)
  Receive Date: 20120731
  Receipt Date: 20120709
  Transmission Date: 20120928
  Serious: No
  Sender: FDA-Public Use
  Company Number: US-ASTRAZENECA-2012SE46913

PATIENT
  Age: 42 Year
  Sex: Female
  Weight: 81.6 kg

DRUGS (5)
  1. SEROQUEL XR [Suspect]
     Indication: POST-TRAUMATIC STRESS DISORDER
     Route: 048
  2. ZYRTEC [Concomitant]
     Indication: HYPERSENSITIVITY
  3. SEROQUEL XR [Suspect]
     Indication: DEPRESSION
     Route: 048
  4. SEROQUEL XR [Suspect]
     Indication: ANXIETY
     Route: 048
  5. PAMELOR [Concomitant]

REACTIONS (6)
  - CRYING [None]
  - MOOD SWINGS [None]
  - DRUG DOSE OMISSION [None]
  - ANXIETY [None]
  - OFF LABEL USE [None]
  - DIARRHOEA [None]
